FAERS Safety Report 7495872-0 (Version None)
Quarter: 2011Q2

REPORT INFORMATION
  Report Type: 
  Country: None (occurrence: None)
  Receive Date: 20110523
  Receipt Date: 20110504
  Transmission Date: 20111010
  Serious: No
  Sender: FDA-Public Use
  Company Number: US-B.I. PHARMACEUTICALS,INC./RIDGEFIELD-2011-BP-02207BP

PATIENT
  Sex: Female

DRUGS (5)
  1. FOSAMAX [Concomitant]
     Indication: OSTEOPOROSIS
  2. PRADAXA [Suspect]
     Indication: CEREBROVASCULAR ACCIDENT PROPHYLAXIS
  3. ASPIRIN [Concomitant]
  4. TOPROL-XL [Concomitant]
     Dosage: 50 MG
     Route: 048
     Dates: start: 20110118
  5. PRADAXA [Suspect]
     Indication: ATRIAL FIBRILLATION
     Dosage: 300 MG
     Route: 048
     Dates: start: 20110117

REACTIONS (11)
  - HEART RATE DECREASED [None]
  - ABDOMINAL PAIN UPPER [None]
  - FOREIGN BODY [None]
  - GINGIVAL BLEEDING [None]
  - CHAPPED LIPS [None]
  - CHEST PAIN [None]
  - JOINT SWELLING [None]
  - CONTUSION [None]
  - LIP HAEMORRHAGE [None]
  - OESOPHAGEAL PAIN [None]
  - ABDOMINAL DISCOMFORT [None]
